FAERS Safety Report 6022993-1 (Version None)
Quarter: 2008Q4

REPORT INFORMATION
  Report Type: 
  Country: None (occurrence: None)
  Receive Date: 20081230
  Receipt Date: 20080110
  Transmission Date: 20090506
  Serious: No
  Sender: FDA-Public Use
  Company Number: US-ABBOTT-08P-163-0433405-00

PATIENT
  Sex: Male
  Weight: 9.2 kg

DRUGS (1)
  1. OMNICEF ORAL SUSPENSION [Suspect]
     Indication: OTITIS MEDIA
     Dosage: 125MG/5MG
     Route: 048
     Dates: start: 20080101, end: 20080101

REACTIONS (1)
  - FAECES DISCOLOURED [None]
